FAERS Safety Report 19076514 (Version 1)
Quarter: 2021Q1

REPORT INFORMATION
  Report Type: Report from Study
  Country: US (occurrence: US)
  Receive Date: 20210331
  Receipt Date: 20210331
  Transmission Date: 20210420
  Serious: No
  Sender: FDA-Public Use
  Company Number: NVSC2021US070122

PATIENT
  Sex: Female

DRUGS (1)
  1. BEOVU [Suspect]
     Active Substance: BROLUCIZUMAB-DBLL
     Indication: NEOVASCULAR AGE-RELATED MACULAR DEGENERATION
     Dosage: UNK, (RIGHT EYE EVERY 6?8 WEEKS)
     Route: 047

REACTIONS (5)
  - Lung disorder [Unknown]
  - Spinal stenosis [Unknown]
  - Cardiac disorder [Unknown]
  - Renal disorder [Unknown]
  - Hypoacusis [Unknown]
